FAERS Safety Report 12714357 (Version 1)
Quarter: 2016Q3

REPORT INFORMATION
  Report Type: Spontaneous
  Country: US (occurrence: US)
  Receive Date: 20160905
  Receipt Date: 20160905
  Transmission Date: 20161109
  Serious: No
  Sender: FDA-Public Use
  Company Number: US-JAZZ-2016-US-008883

PATIENT
  Sex: Female

DRUGS (19)
  1. CYCLOBENZAPRINE [Concomitant]
     Active Substance: CYCLOBENZAPRINE
  2. NAPROXEN. [Concomitant]
     Active Substance: NAPROXEN
  3. VYVANSE [Concomitant]
     Active Substance: LISDEXAMFETAMINE DIMESYLATE
  4. CAL MAG [Concomitant]
  5. NALTREXONE [Concomitant]
     Active Substance: NALTREXONE
  6. XYREM [Suspect]
     Active Substance: SODIUM OXYBATE
     Indication: NARCOLEPSY
     Dosage: 3 G, BID
     Route: 048
     Dates: start: 200904, end: 200904
  7. EFFEXOR [Concomitant]
     Active Substance: VENLAFAXINE HYDROCHLORIDE
  8. PROVIGIL [Concomitant]
     Active Substance: MODAFINIL
  9. TRAMADOL HCL [Concomitant]
     Active Substance: TRAMADOL HYDROCHLORIDE
  10. XYREM [Suspect]
     Active Substance: SODIUM OXYBATE
     Dosage: 4.5 G, FIRST DOSE
     Route: 048
     Dates: start: 201601
  11. AEROSPAN [Concomitant]
     Active Substance: FLUNISOLIDE
  12. GABAPENTIN. [Concomitant]
     Active Substance: GABAPENTIN
  13. SEROQUEL [Concomitant]
     Active Substance: QUETIAPINE FUMARATE
  14. VIRTUSSIN AC [Concomitant]
     Active Substance: CODEINE PHOSPHATE\GUAIFENESIN
  15. XYREM [Suspect]
     Active Substance: SODIUM OXYBATE
     Dosage: DOSE ADJUSTMENTS
     Route: 048
  16. XYREM [Suspect]
     Active Substance: SODIUM OXYBATE
     Dosage: 2.25 G, THIRD DOSE
     Route: 048
     Dates: start: 201601
  17. ABILIFY [Concomitant]
     Active Substance: ARIPIPRAZOLE
  18. FLONASE ALLERGY RLF [Concomitant]
  19. XYREM [Suspect]
     Active Substance: SODIUM OXYBATE
     Dosage: 2.25 G, SECOND DOSE
     Route: 048
     Dates: start: 201601

REACTIONS (1)
  - Nasopharyngitis [Not Recovered/Not Resolved]
